FAERS Safety Report 14669603 (Version 2)
Quarter: 2018Q2

REPORT INFORMATION
  Report Type: Spontaneous
  Country: US (occurrence: US)
  Receive Date: 20180322
  Receipt Date: 20180406
  Transmission Date: 20180711
  Serious: Yes (Other)
  Sender: FDA-Public Use
  Company Number: US-GLAXOSMITHKLINE-US2018046723

PATIENT
  Age: 52 Year
  Sex: Female

DRUGS (5)
  1. HYDROXYCHLOROQUINE [Concomitant]
     Active Substance: HYDROXYCHLOROQUINE
  2. PREDNISONE. [Concomitant]
     Active Substance: PREDNISONE
  3. TRAMADOL. [Concomitant]
     Active Substance: TRAMADOL
  4. TYLENOL [Concomitant]
     Active Substance: ACETAMINOPHEN
  5. BENLYSTA [Suspect]
     Active Substance: BELIMUMAB
     Indication: SYSTEMIC LUPUS ERYTHEMATOSUS
     Dosage: UNK UNK, CYC
     Route: 042
     Dates: start: 2013

REACTIONS (11)
  - Musculoskeletal stiffness [Recovering/Resolving]
  - Joint stiffness [Recovering/Resolving]
  - Energy increased [Unknown]
  - Swelling [Recovering/Resolving]
  - Pain in extremity [Unknown]
  - Pain [Recovering/Resolving]
  - Muscle tightness [Recovering/Resolving]
  - Inflammation [Recovering/Resolving]
  - Drug effect incomplete [Unknown]
  - Systemic lupus erythematosus [Unknown]
  - Feeling abnormal [Unknown]

NARRATIVE: CASE EVENT DATE: 201709
